FAERS Safety Report 10176717 (Version 2)
Quarter: 2014Q3

REPORT INFORMATION
  Report Type: Spontaneous
  Country: US (occurrence: US)
  Receive Date: 20140516
  Receipt Date: 20140723
  Transmission Date: 20150326
  Serious: Yes (Other)
  Sender: FDA-Public Use
  Company Number: US-BRISTOL-MYERS SQUIBB COMPANY-20696605

PATIENT
  Age: 58 Year
  Sex: Female
  Weight: 98.86 kg

DRUGS (13)
  1. TURMERIC [Concomitant]
     Active Substance: TURMERIC
  2. FARXIGA [Suspect]
     Active Substance: DAPAGLIFLOZIN PROPANEDIOL
     Indication: TYPE 2 DIABETES MELLITUS
     Route: 048
     Dates: start: 20140409
  3. GLIPIZIDE. [Concomitant]
     Active Substance: GLIPIZIDE
  4. NIACIN. [Concomitant]
     Active Substance: NIACIN
  5. FARXIGA [Suspect]
     Active Substance: DAPAGLIFLOZIN PROPANEDIOL
     Indication: NEUROPATHY PERIPHERAL
     Route: 048
     Dates: start: 20140409
  6. SINGULAIR [Concomitant]
     Active Substance: MONTELUKAST SODIUM
  7. INSULIN REGULAR [Concomitant]
     Active Substance: INSULIN NOS
  8. LANTUS [Concomitant]
     Active Substance: INSULIN GLARGINE
  9. HUMULIN NOS [Concomitant]
     Active Substance: INSULIN HUMAN
  10. METFORMIN HCL [Suspect]
     Active Substance: METFORMIN HYDROCHLORIDE
     Indication: TYPE 2 DIABETES MELLITUS
  11. BYETTA [Concomitant]
     Active Substance: EXENATIDE
  12. OMEGA 3 FISH OIL [Concomitant]
     Active Substance: FISH OIL\OMEGA-3 FATTY ACIDS
  13. NEXIUM [Concomitant]
     Active Substance: ESOMEPRAZOLE MAGNESIUM

REACTIONS (7)
  - Weight decreased [Unknown]
  - Retinal detachment [Unknown]
  - Dry eye [Recovered/Resolved]
  - Eye irritation [Unknown]
  - Abnormal faeces [Unknown]
  - Dry mouth [Recovered/Resolved]
  - Blepharospasm [Unknown]

NARRATIVE: CASE EVENT DATE: 201404
